FAERS Safety Report 5016507-2 (Version None)
Quarter: 2006Q2

REPORT INFORMATION
  Report Type: 
  Country: None (occurrence: None)
  Receive Date: 20060602
  Receipt Date: 20060529
  Transmission Date: 20061013
  Serious: Yes (Other)
  Sender: FDA-Public Use
  Company Number: DE-AVENTIS-200611574DE

PATIENT
  Age: 51 Year
  Sex: Male

DRUGS (3)
  1. KETEK [Suspect]
     Dosage: DOSE: NOT REPORTED
     Route: 048
     Dates: start: 20021001, end: 20020101
  2. KETEK [Suspect]
     Route: 048
     Dates: start: 20021119
  3. KLACID [Concomitant]
     Dosage: DOSE: NOT REPORTED
     Dates: start: 20020101, end: 20020101

REACTIONS (30)
  - ANAEMIA [None]
  - ARTHRALGIA [None]
  - C-REACTIVE PROTEIN INCREASED [None]
  - CYTOMEGALOVIRUS INFECTION [None]
  - DRUG TOXICITY [None]
  - EPSTEIN-BARR VIRUS INFECTION [None]
  - FIBRIN D DIMER INCREASED [None]
  - IMMUNE SYSTEM DISORDER [None]
  - INFLUENZA LIKE ILLNESS [None]
  - ISCHAEMIA [None]
  - LIVER DISORDER [None]
  - LUNG DISORDER [None]
  - MUSCULOSKELETAL STIFFNESS [None]
  - MYALGIA [None]
  - MYASTHENIA GRAVIS [None]
  - PAIN [None]
  - PLEURISY [None]
  - PNEUMONIA [None]
  - POLYARTHRITIS [None]
  - PULMONARY EMBOLISM [None]
  - PULMONARY FIBROSIS [None]
  - PULMONARY OEDEMA [None]
  - RED BLOOD CELL SEDIMENTATION RATE INCREASED [None]
  - RENAL CYST [None]
  - RESPIRATORY FAILURE [None]
  - RHEUMATOID FACTOR INCREASED [None]
  - SKIN DISCOLOURATION [None]
  - SYSTEMIC LUPUS ERYTHEMATOSUS [None]
  - TESTICULAR CYST [None]
  - VASCULITIS [None]
